FAERS Safety Report 11668278 (Version 2)
Quarter: 2015Q4

REPORT INFORMATION
  Report Type: Report from Study
  Country: AU (occurrence: AU)
  Receive Date: 20151027
  Receipt Date: 20151027
  Transmission Date: 20160304
  Serious: Yes (Life-Threatening, Hospitalization, Disabling, Other)
  Sender: FDA-Public Use
  Company Number: PHHO2013AU019921

PATIENT
  Age: 69 Year
  Sex: Male
  Weight: 91.4 kg

DRUGS (4)
  1. GSK2110183 [Suspect]
     Active Substance: AFURESERTIB
     Indication: PLASMA CELL MYELOMA
     Dosage: 150 MG, QD
     Route: 048
     Dates: start: 20130729, end: 20130807
  2. DEXAMETHASONE. [Suspect]
     Active Substance: DEXAMETHASONE
     Indication: PLASMA CELL MYELOMA
     Dosage: 40 MG, BIW
     Route: 048
     Dates: start: 20130729, end: 20130809
  3. BORTEZOMIB [Suspect]
     Active Substance: BORTEZOMIB
     Indication: PLASMA CELL MYELOMA
     Dosage: 1.3 MG/M2, BIW
     Route: 058
     Dates: start: 20130729, end: 20130809
  4. LOPERAMIDE HYDROCHLORIDE SANDOZ [Suspect]
     Active Substance: LOPERAMIDE HYDROCHLORIDE
     Indication: PRODUCT USED FOR UNKNOWN INDICATION
     Dosage: 2 DF, PRN
     Route: 048
     Dates: start: 20130801

REACTIONS (5)
  - Diarrhoea [None]
  - Critical illness myopathy [Not Recovered/Not Resolved]
  - Intestinal obstruction [Recovered/Resolved]
  - Escherichia sepsis [Recovered/Resolved]
  - Multi-organ failure [None]

NARRATIVE: CASE EVENT DATE: 20130812
